FAERS Safety Report 23682314 (Version 2)
Quarter: 2024Q2

REPORT INFORMATION
  Report Type: Spontaneous
  Country: US (occurrence: US)
  Receive Date: 20240328
  Receipt Date: 20240402
  Transmission Date: 20240716
  Serious: Yes (Other)
  Sender: FDA-Public Use
  Company Number: US-002147023-NVSC2024US066168

PATIENT

DRUGS (1)
  1. KESIMPTA [Suspect]
     Active Substance: OFATUMUMAB
     Indication: Relapsing-remitting multiple sclerosis
     Dosage: UNK
     Route: 065

REACTIONS (8)
  - Multiple sclerosis relapse [Unknown]
  - Malaise [Unknown]
  - Paraesthesia [Unknown]
  - Burning sensation [Unknown]
  - Balance disorder [Unknown]
  - Sensitive skin [Unknown]
  - Illness [Unknown]
  - Therapeutic product effect incomplete [Unknown]
